FAERS Safety Report 7390065-X (Version None)
Quarter: 2011Q2

REPORT INFORMATION
  Report Type: 
  Country: None (occurrence: None)
  Receive Date: 20110401
  Receipt Date: 20110317
  Transmission Date: 20111010
  Serious: Yes (Hospitalization, Other)
  Sender: FDA-Public Use
  Company Number: US-BAYER-201037461NA

PATIENT
  Sex: Female
  Weight: 77.098 kg

DRUGS (6)
  1. OCELLA [Suspect]
     Indication: PRODUCT USED FOR UNKNOWN INDICATION
     Route: 048
     Dates: start: 20060926, end: 20070101
  2. YASMIN [Suspect]
     Indication: PRODUCT USED FOR UNKNOWN INDICATION
     Route: 048
     Dates: start: 20060926, end: 20070101
  3. TAPAZOLE [Concomitant]
     Indication: HYPERTHYROIDISM
     Dosage: 10 MG, OM
     Route: 048
  4. COUMADIN [Concomitant]
     Indication: DEEP VEIN THROMBOSIS
  5. TAPAZOLE [Concomitant]
     Dosage: 5 MG, HS
  6. YAZ [Suspect]
     Indication: PRODUCT USED FOR UNKNOWN INDICATION
     Route: 048
     Dates: start: 20060926, end: 20070101

REACTIONS (2)
  - PAIN [None]
  - DEEP VEIN THROMBOSIS [None]
